FAERS Safety Report 17647254 (Version 4)
Quarter: 2020Q2

REPORT INFORMATION
  Report Type: Spontaneous
  Country: IT (occurrence: IT)
  Receive Date: 20200408
  Receipt Date: 20200501
  Transmission Date: 20200713
  Serious: Yes (Life-Threatening, Hospitalization, Other)
  Sender: FDA-Public Use
  Company Number: IT-AUROBINDO-AUR-APL-2020-016568

PATIENT
  Age: 6 Year
  Sex: Female

DRUGS (18)
  1. CARBOPLATIN. [Suspect]
     Active Substance: CARBOPLATIN
     Indication: NEUROBLASTOMA
     Dosage: UNK (SIOPEN NB-HR-01 PROTOCOL )
     Route: 065
     Dates: start: 201507
  2. CARBOPLATIN. [Suspect]
     Active Substance: CARBOPLATIN
     Dosage: UNK UNK, CYCLICAL
     Route: 065
     Dates: start: 201507, end: 201603
  3. CISPLATIN. [Suspect]
     Active Substance: CISPLATIN
     Indication: NEUROBLASTOMA
     Dosage: UNK, CYCLICAL  (SIOPEN NB-HR-01 PROTOCOL)
     Route: 065
     Dates: start: 201507, end: 201603
  4. DINUTUXIMAB [Suspect]
     Active Substance: DINUTUXIMAB
     Dosage: UNK, 6 CYCLES ANTI-GD2 ANTIBODY
     Route: 065
     Dates: start: 2016
  5. DINUTUXIMAB [Suspect]
     Active Substance: DINUTUXIMAB
     Dosage: UNK, (SIOPEN NB-HR-01)
     Route: 065
     Dates: start: 2016
  6. IRINOTECAN CONCENTRATE FOR SOLUTION FOR INFUSION [Suspect]
     Active Substance: IRINOTECAN
     Dosage: 50 MILLIGRAM/SQ. METER (FOR FIVE CONSECUTIVE DAYS EVERY 3 WEEKS FOR 18 MONTHS)
     Route: 065
     Dates: start: 201607, end: 201812
  7. MELPHALAN. [Suspect]
     Active Substance: MELPHALAN
     Dosage: UNK
     Route: 065
     Dates: start: 201603
  8. BUSULFAN. [Suspect]
     Active Substance: BUSULFAN
     Indication: NEUROBLASTOMA
     Dosage: UNK
     Route: 065
     Dates: start: 201507
  9. TEMOZOLOMIDE. [Suspect]
     Active Substance: TEMOZOLOMIDE
     Dosage: 100 MILLIGRAM/SQ. METER (FOR FIVE CONSECUTIVE DAYS EVERY 3 WEEKS FOR 18 MONTHS)
     Route: 065
     Dates: start: 201607, end: 201812
  10. IRINOTECAN CONCENTRATE FOR SOLUTION FOR INFUSION [Suspect]
     Active Substance: IRINOTECAN
     Indication: NEUROBLASTOMA
     Dosage: 50 MILLIGRAM/SQ. METER (FOR FIVE CONSECUTIVE DAYS EVERY 3 WEEKS FOR 18 MONTHS)
     Route: 065
     Dates: start: 201607, end: 201801
  11. TEMOZOLOMIDE. [Suspect]
     Active Substance: TEMOZOLOMIDE
     Indication: NEUROBLASTOMA
     Dosage: 100 MILLIGRAM/SQ. METER (FOR FIVE CONSECUTIVE DAYS EVERY 3 WEEKS FOR 18 MONTHS)
     Route: 065
     Dates: start: 201607, end: 201801
  12. MELPHALAN. [Suspect]
     Active Substance: MELPHALAN
     Indication: NEUROBLASTOMA
     Dosage: UNK
     Route: 065
     Dates: start: 201507
  13. MELPHALAN. [Suspect]
     Active Substance: MELPHALAN
     Dosage: UNK (SIOPEN NB-HR-01 PROTOCOL )
     Route: 065
     Dates: start: 2016
  14. ETOPOSIDE. [Suspect]
     Active Substance: ETOPOSIDE
     Indication: NEUROBLASTOMA
     Dosage: UNK, CYCLICAL (SIOPEN NB-HR-01)
     Route: 065
     Dates: start: 201507, end: 201603
  15. VINCRISTINE [Suspect]
     Active Substance: VINCRISTINE
     Indication: NEUROBLASTOMA
     Dosage: UNK, CYCLICAL (SIOPEN NB-HR-01)
     Route: 065
     Dates: start: 201507, end: 201603
  16. DINUTUXIMAB [Suspect]
     Active Substance: DINUTUXIMAB
     Indication: NEUROBLASTOMA
     Dosage: UNK
     Route: 065
     Dates: start: 201507
  17. BUSULFAN. [Suspect]
     Active Substance: BUSULFAN
     Indication: STEM CELL TRANSPLANT
     Dosage: UNK (SIOPEN NB-HR-01 PROTOCOL )
     Route: 065
     Dates: start: 201603
  18. CYCLOPHOSPHAMIDE. [Suspect]
     Active Substance: CYCLOPHOSPHAMIDE
     Indication: NEUROBLASTOMA
     Dosage: UNK, CYCLICAL
     Route: 065
     Dates: start: 201507, end: 201603

REACTIONS (12)
  - Respiratory tract infection fungal [Not Recovered/Not Resolved]
  - Drug resistance [Unknown]
  - Device related infection [Recovered/Resolved]
  - Immunodeficiency [Unknown]
  - Fungaemia [Unknown]
  - Bone marrow failure [Unknown]
  - Product use in unapproved indication [Unknown]
  - Bone marrow toxicity [Unknown]
  - Drug ineffective [Unknown]
  - Staphylococcal infection [Recovered/Resolved]
  - Pyrexia [Unknown]
  - C-reactive protein increased [Unknown]

NARRATIVE: CASE EVENT DATE: 201603
